FAERS Safety Report 4935208-X (Version None)
Quarter: 2006Q1

REPORT INFORMATION
  Report Type: 
  Country: None (occurrence: None)
  Receive Date: 20060302
  Receipt Date: 20060216
  Transmission Date: 20060701
  Serious: Yes (Other)
  Sender: FDA-Public Use
  Company Number: US200602003592

PATIENT
  Age: 54 Year
  Sex: Female

DRUGS (4)
  1. HUMALOG [Suspect]
     Indication: DIABETES MELLITUS
  2. HUMULIN U [Suspect]
     Indication: DIABETES MELLITUS
  3. INSULIN [Suspect]
     Indication: DIABETES MELLITUS
     Dates: start: 19600101
  4. LANTUS [Concomitant]

REACTIONS (2)
  - CONNECTIVE TISSUE INFLAMMATION [None]
  - DIABETES MELLITUS INADEQUATE CONTROL [None]
